FAERS Safety Report 9908250 (Version 1)
Quarter: 2014Q1

REPORT INFORMATION
  Report Type: Spontaneous
  Country: US (occurrence: None)
  Receive Date: 20140214
  Receipt Date: 20140214
  Transmission Date: 20141002
  Serious: Yes (Other)
  Sender: FDA-Public Use
  Company Number: None

PATIENT
  Sex: 0

DRUGS (2)
  1. LEVETIRACETAM [Suspect]
     Dosage: INJECTABLE (100MG  SINGLE USE VIAL 5 ML
     Route: 042
  2. LEVOCARNITINE [Suspect]
     Dosage: INJECTABLE ((200 MG/ML , 5 ML

REACTIONS (3)
  - Medication error [None]
  - Product colour issue [None]
  - Product label issue [None]
